FAERS Safety Report 5015473-3 (Version None)
Quarter: 2006Q2

REPORT INFORMATION
  Report Type: 
  Country: None (occurrence: None)
  Receive Date: 20060601
  Receipt Date: 20060523
  Transmission Date: 20061013
  Serious: Yes (Hospitalization)
  Sender: FDA-Public Use
  Company Number: 2006SE02925

PATIENT
  Age: 25994 Day
  Sex: Female
  Weight: 52 kg

DRUGS (4)
  1. BLOPRESS PLUS [Suspect]
     Indication: HYPERTENSION
     Route: 048
  2. CARVEDILOL [Concomitant]
     Indication: HYPERTENSION
     Route: 048
  3. DIGIMERCK MINOR [Concomitant]
     Indication: ATRIAL FIBRILLATION
     Route: 048
  4. MARCUMAR [Concomitant]
     Indication: ATRIAL FLUTTER
     Route: 048

REACTIONS (5)
  - ANOREXIA [None]
  - HYPONATRAEMIA [None]
  - NAUSEA [None]
  - VOMITING [None]
  - WEIGHT DECREASED [None]
